FAERS Safety Report 9267011 (Version 1)
Quarter: 2013Q2

REPORT INFORMATION
  Report Type: Spontaneous
  Country: US (occurrence: US)
  Receive Date: 20130502
  Receipt Date: 20130502
  Transmission Date: 20140414
  Serious: No
  Sender: FDA-Public Use
  Company Number: US-PFIZER INC-2013136429

PATIENT
  Age: 31 Year
  Sex: Female
  Weight: 88.44 kg

DRUGS (8)
  1. LYRICA [Suspect]
     Indication: FIBROMYALGIA
     Dosage: 150 MG, 3X/DAY
     Dates: start: 201210
  2. TIZANIDINE [Suspect]
     Indication: MUSCLE SPASMS
     Dosage: 2 MG, AS NEEDED
  3. TIZANIDINE [Suspect]
     Indication: MYALGIA
  4. CYMBALTA [Concomitant]
     Dosage: 50 MG, 2X/DAY
  5. NORCO [Concomitant]
     Indication: PAIN
     Dosage: 10/325 MG, AS NEEDED
  6. CEPHALEXIN [Concomitant]
     Indication: GLOSSITIS
     Dosage: 500 MG, 2X/DAY
     Route: 048
  7. ALPRAZOLAM [Concomitant]
     Indication: ANXIETY
     Dosage: HALF TO ONE TABLET OF 2 MG, 2X/DAY
     Route: 048
  8. ZOLPIDEM [Concomitant]
     Indication: SLEEP DISORDER
     Dosage: UNK

REACTIONS (5)
  - Euphoric mood [Not Recovered/Not Resolved]
  - Balance disorder [Not Recovered/Not Resolved]
  - Vision blurred [Not Recovered/Not Resolved]
  - Feeling drunk [Not Recovered/Not Resolved]
  - Drug ineffective [Unknown]
